FAERS Safety Report 5048173-4 (Version None)
Quarter: 2006Q3

REPORT INFORMATION
  Report Type: 
  Country: None (occurrence: None)
  Receive Date: 20060711
  Receipt Date: 20060612
  Transmission Date: 20061208
  Serious: Yes (Other)
  Sender: FDA-Public Use
  Company Number: JP-ROCHE-451904

PATIENT
  Age: 76 Year
  Sex: Male

DRUGS (9)
  1. ROCEPHIN [Suspect]
     Indication: PNEUMONIA
     Dosage: ROUTE REPORTED AS INTRAVENOUS (NOT OTHERWISE SPECIFIED).
     Route: 042
     Dates: start: 20060602, end: 20060609
  2. GASMOTIN [Concomitant]
     Route: 048
     Dates: start: 20050715
  3. DOMPERIDONE [Concomitant]
     Dosage: REPORTED AS SELOVASE.
     Route: 048
     Dates: start: 20050715
  4. FAMOTIDINE [Concomitant]
     Route: 048
     Dates: start: 20050715
  5. MYSLEE [Concomitant]
     Route: 048
     Dates: start: 20050715
  6. PREDNISOLONE [Concomitant]
     Route: 048
  7. ALLOPURINOL [Concomitant]
     Dosage: REPORTED AS NEUFAN.
     Route: 048
  8. MAGLAX [Concomitant]
     Route: 048
  9. AMBROXOL HYDROCHLORIDE [Concomitant]
     Dosage: REPORTED AS GRINKOOL.
     Route: 048

REACTIONS (4)
  - ALANINE AMINOTRANSFERASE INCREASED [None]
  - ASPARTATE AMINOTRANSFERASE INCREASED [None]
  - BLOOD ALKALINE PHOSPHATASE INCREASED [None]
  - LIVER DISORDER [None]
